FAERS Safety Report 23230022 (Version 2)
Quarter: 2024Q1

REPORT INFORMATION
  Report Type: Spontaneous
  Country: US (occurrence: US)
  Receive Date: 20231127
  Receipt Date: 20240111
  Transmission Date: 20240409
  Serious: No
  Sender: FDA-Public Use
  Company Number: US-BRISTOL-MYERS SQUIBB COMPANY-2023-168880

PATIENT
  Age: 53 Year
  Sex: Female

DRUGS (1)
  1. REVLIMID [Suspect]
     Active Substance: LENALIDOMIDE
     Indication: Plasma cell myeloma
     Route: 048
     Dates: start: 202210

REACTIONS (8)
  - Skin irritation [Recovered/Resolved]
  - Ocular hyperaemia [Unknown]
  - Swelling of eyelid [Unknown]
  - Eye pain [Unknown]
  - Eye swelling [Unknown]
  - Vision blurred [Unknown]
  - Emotional disorder [Unknown]
  - Eye discharge [Unknown]

NARRATIVE: CASE EVENT DATE: 20231023
